FAERS Safety Report 20899961 (Version 2)
Quarter: 2022Q2

REPORT INFORMATION
  Report Type: Spontaneous
  Country: BR (occurrence: BR)
  Receive Date: 20220601
  Receipt Date: 20220615
  Transmission Date: 20220721
  Serious: Yes (Death)
  Sender: FDA-Public Use
  Company Number: BR-Melinta Therapeutics, LLC-BR-MLNT-22-00077

PATIENT

DRUGS (2)
  1. DELAFLOXACIN [Suspect]
     Active Substance: DELAFLOXACIN
     Indication: Septic shock
     Dosage: NOT PROVIDED.
  2. DELAFLOXACIN [Suspect]
     Active Substance: DELAFLOXACIN
     Indication: Infection

REACTIONS (1)
  - Death [Fatal]
